FAERS Safety Report 20390296 (Version 1)
Quarter: 2022Q1

REPORT INFORMATION
  Report Type: Spontaneous
  Country: BR (occurrence: BR)
  Receive Date: 20220128
  Receipt Date: 20220128
  Transmission Date: 20220423
  Serious: Yes (Other)
  Sender: FDA-Public Use
  Company Number: BR-ABBVIE-22K-020-4253706-00

PATIENT
  Age: 46 Year
  Sex: Female
  Weight: 60 kg

DRUGS (5)
  1. HUMIRA [Suspect]
     Active Substance: ADALIMUMAB
     Indication: Rheumatoid arthritis
     Route: 058
     Dates: start: 2018
  2. CODEINE [Concomitant]
     Active Substance: CODEINE
     Indication: Rheumatoid arthritis
     Route: 048
     Dates: start: 2018
  3. DOLOPHINE [Concomitant]
     Active Substance: METHADONE HYDROCHLORIDE
     Indication: Arthralgia
     Route: 048
     Dates: start: 2018
  4. DULOXETINE [Concomitant]
     Active Substance: DULOXETINE
     Indication: Arthralgia
     Route: 048
     Dates: start: 2018
  5. COLAGEN [Concomitant]
     Indication: Arthritis
     Route: 048
     Dates: start: 2018

REACTIONS (1)
  - Intracranial aneurysm [Not Recovered/Not Resolved]

NARRATIVE: CASE EVENT DATE: 20220101
